FAERS Safety Report 16019841 (Version 1)
Quarter: 2019Q1

REPORT INFORMATION
  Report Type: Spontaneous
  Country: US (occurrence: US)
  Receive Date: 20190228
  Receipt Date: 20190228
  Transmission Date: 20190418
  Serious: Yes (Hospitalization)
  Sender: FDA-Public Use
  Company Number: US-TEVA-2019-US-1018045

PATIENT
  Age: 66 Year
  Sex: Male

DRUGS (1)
  1. CYCLOSPORIN TEVA [Suspect]
     Active Substance: CYCLOSPORINE
     Indication: LIVER TRANSPLANT
     Route: 065

REACTIONS (1)
  - Blood potassium increased [Unknown]
